FAERS Safety Report 6389023-3 (Version None)
Quarter: 2009Q4

REPORT INFORMATION
  Report Type: 
  Country: None (occurrence: None)
  Receive Date: 20091001
  Receipt Date: 20090414
  Transmission Date: 20100525
  Serious: Yes (Other)
  Sender: FDA-Public Use
  Company Number: TRP_06450_2009

PATIENT
  Sex: Female

DRUGS (5)
  1. RIBAVIRIN [Suspect]
     Indication: HEPATITIS C
     Dosage: 800 MG, DAILY
     Dates: start: 20090220, end: 20090701
  2. RIBAVIRIN [Suspect]
     Indication: HEPATITIS C
     Dosage: 800 MG, DAILY)
     Dates: start: 20090220, end: 20090701
  3. PEGASYS [Suspect]
     Indication: HEPATITIS C
     Dosage: 180 UG 1X/WEEK
     Dates: start: 20090220, end: 20090701
  4. METHOTREXATE [Concomitant]
  5. PSYCHIATRIC DRUGS [Concomitant]

REACTIONS (11)
  - ARTHRALGIA [None]
  - BACK PAIN [None]
  - CONDITION AGGRAVATED [None]
  - FATIGUE [None]
  - FLANK PAIN [None]
  - HEADACHE [None]
  - INJECTION SITE HAEMATOMA [None]
  - MANIA [None]
  - NO THERAPEUTIC RESPONSE [None]
  - PAIN IN EXTREMITY [None]
  - SLEEP DISORDER [None]
